FAERS Safety Report 23816292 (Version 1)
Quarter: 2024Q2

REPORT INFORMATION
  Report Type: Spontaneous
  Country: US (occurrence: US)
  Receive Date: 20240503
  Receipt Date: 20240503
  Transmission Date: 20240716
  Serious: No
  Sender: FDA-Public Use
  Company Number: US-BRISTOL-MYERS SQUIBB COMPANY-2024-064483

PATIENT
  Age: 61 Year
  Sex: Female
  Weight: 57.2 kg

DRUGS (2)
  1. ABRAXANE [Suspect]
     Active Substance: PACLITAXEL
     Indication: Pancreatic carcinoma
     Dosage: FREQUENCY: EVERY 2 WEEKS INSTEAD OF ON DAYS 1, 8, AND 15 OF EACH 28-DAY CYCLE.?STRENGTH: 100 MG VIAL
     Route: 042
     Dates: start: 20230828
  2. ABRAXANE [Suspect]
     Active Substance: PACLITAXEL
     Route: 042

REACTIONS (2)
  - Off label use [Unknown]
  - Weight increased [Unknown]
